FAERS Safety Report 5502288-2 (Version None)
Quarter: 2007Q4

REPORT INFORMATION
  Report Type: 
  Country: None (occurrence: None)
  Receive Date: 20071030
  Receipt Date: 20071016
  Transmission Date: 20080405
  Serious: Yes (Other)
  Sender: FDA-Public Use
  Company Number: MY-RANBAXY-2007R3-10807

PATIENT

DRUGS (3)
  1. NEVIRAPINE [Suspect]
     Indication: HIV INFECTION
     Dosage: 200 MG, BID
     Route: 048
     Dates: start: 20070906, end: 20070928
  2. LAMIVUDINE [Suspect]
     Indication: HIV INFECTION
     Dosage: 150 MG, BID
     Dates: start: 20070906
  3. STAVUDINE [Suspect]
     Indication: HIV INFECTION
     Dosage: 30 MG, BID
     Dates: start: 20070906

REACTIONS (7)
  - CHILLS [None]
  - GENERALISED ERYTHEMA [None]
  - PAIN [None]
  - PRURITUS [None]
  - PYREXIA [None]
  - RASH PAPULAR [None]
  - ULCER [None]
